FAERS Safety Report 6339151-3 (Version None)
Quarter: 2009Q3

REPORT INFORMATION
  Report Type: 
  Country: None (occurrence: None)
  Receive Date: 20090903
  Receipt Date: 20090831
  Transmission Date: 20100115
  Serious: Yes (Hospitalization)
  Sender: FDA-Public Use
  Company Number: US-ASTRAZENECA-2009SE10691

PATIENT
  Age: 72 Year
  Sex: Female
  Weight: 54 kg

DRUGS (14)
  1. PULMICORT RESPULES [Suspect]
     Indication: ASTHMA
     Route: 055
     Dates: start: 20090701
  2. PULMICORT RESPULES [Suspect]
     Indication: CHRONIC OBSTRUCTIVE PULMONARY DISEASE
     Route: 055
     Dates: start: 20090701
  3. PULMICORT RESPULES [Suspect]
     Indication: EMPHYSEMA
     Route: 055
     Dates: start: 20090701
  4. PERFOROMIST [Concomitant]
  5. AMLODIPINE [Concomitant]
  6. LISINOPRIL [Concomitant]
  7. VITAMINS [Concomitant]
  8. STOOL SOFTNER [Concomitant]
  9. ATIVAN [Concomitant]
  10. GAS RELIFE [Concomitant]
  11. PRILOSEC OTC [Concomitant]
  12. LAXATIVES [Concomitant]
  13. MAALOX [Concomitant]
  14. ALBUTEROL [Concomitant]

REACTIONS (1)
  - LARGE INTESTINAL STRICTURE [None]
